FAERS Safety Report 6312574-4 (Version None)
Quarter: 2009Q3

REPORT INFORMATION
  Report Type: 
  Country: None (occurrence: None)
  Receive Date: 20090813
  Receipt Date: 20090804
  Transmission Date: 20100115
  Serious: Yes (Hospitalization)
  Sender: FDA-Public Use
  Company Number: SPV1-2009-01605

PATIENT
  Age: 34 Year
  Sex: Female
  Weight: 79.4 kg

DRUGS (5)
  1. LIALDA [Suspect]
     Indication: COLITIS ULCERATIVE
     Dosage: 4.8 G, 1X/DAY:QD, ORAL; 1.2 G, 1X/DAY:QD, ORAL
     Route: 048
     Dates: start: 20090718, end: 20090718
  2. LIALDA [Suspect]
     Indication: COLITIS ULCERATIVE
     Dosage: 4.8 G, 1X/DAY:QD, ORAL; 1.2 G, 1X/DAY:QD, ORAL
     Route: 048
     Dates: start: 20090719, end: 20090719
  3. HUMALOG /01293501/ (INSULIN LISPRO) INJECTION [Concomitant]
  4. LANTUS [Concomitant]
  5. VITAMIN D NOS (VITAMIN D NOS) UNKNOWN [Concomitant]

REACTIONS (5)
  - DYSPEPSIA [None]
  - HYPERVENTILATION [None]
  - UNDERDOSE [None]
  - URINE KETONE BODY PRESENT [None]
  - VOMITING [None]
